FAERS Safety Report 13609268 (Version 1)
Quarter: 2017Q2

REPORT INFORMATION
  Report Type: Spontaneous
  Country: FR (occurrence: FR)
  Receive Date: 20170602
  Receipt Date: 20170602
  Transmission Date: 20170830
  Serious: Yes (Hospitalization)
  Sender: FDA-Public Use
  Company Number: FR-BAYER-2017-104657

PATIENT
  Age: 29 Year
  Sex: Female

DRUGS (1)
  1. MIRENA [Suspect]
     Active Substance: LEVONORGESTREL
     Dosage: 20 MCG/24HR, CONT
     Route: 015
     Dates: end: 20110314

REACTIONS (4)
  - Ectopic pregnancy with contraceptive device [Recovered/Resolved]
  - Salpingitis [Recovered/Resolved]
  - Ovarian cyst [Recovered/Resolved]
  - Peritoneal haemorrhage [Recovered/Resolved]

NARRATIVE: CASE EVENT DATE: 20110315
